FAERS Safety Report 6164605-2 (Version None)
Quarter: 2009Q2

REPORT INFORMATION
  Report Type: 
  Country: None (occurrence: None)
  Receive Date: 20090423
  Receipt Date: 20090415
  Transmission Date: 20091009
  Serious: No
  Sender: FDA-Public Use
  Company Number: US-JNJFOC-20090404104

PATIENT
  Sex: Male
  Weight: 133.81 kg

DRUGS (2)
  1. INVEGA [Suspect]
     Indication: SCHIZOPHRENIA
     Route: 048
  2. TRAZODONE HCL [Concomitant]
     Route: 048

REACTIONS (1)
  - SWOLLEN TONGUE [None]
